FAERS Safety Report 25986119 (Version 1)
Quarter: 2025Q4

REPORT INFORMATION
  Report Type: Report from Study
  Country: CN (occurrence: CN)
  Receive Date: 20251101
  Receipt Date: 20251101
  Transmission Date: 20260118
  Serious: Yes (Other)
  Sender: ROCHE
  Company Number: CN-ROCHE-10000345978

PATIENT
  Age: 34 Year
  Sex: Female
  Weight: 64 kg

DRUGS (55)
  1. POLATUZUMAB VEDOTIN [Suspect]
     Active Substance: POLATUZUMAB VEDOTIN
     Indication: Diffuse large B-cell lymphoma
     Route: 042
     Dates: start: 20250308, end: 20250308
  2. POLATUZUMAB VEDOTIN [Suspect]
     Active Substance: POLATUZUMAB VEDOTIN
     Route: 042
     Dates: start: 20250401, end: 20250401
  3. RITUXIMAB [Suspect]
     Active Substance: RITUXIMAB
     Indication: Diffuse large B-cell lymphoma
     Route: 042
     Dates: start: 20250308, end: 20250308
  4. RITUXIMAB [Suspect]
     Active Substance: RITUXIMAB
     Route: 042
     Dates: start: 20250401, end: 20250401
  5. CYCLOPHOSPHAMIDE [Suspect]
     Active Substance: CYCLOPHOSPHAMIDE
     Indication: Diffuse large B-cell lymphoma
     Route: 042
     Dates: start: 20250309, end: 20250309
  6. CYCLOPHOSPHAMIDE [Suspect]
     Active Substance: CYCLOPHOSPHAMIDE
     Route: 042
     Dates: start: 20250401, end: 20250401
  7. PREDNISONE [Suspect]
     Active Substance: PREDNISONE
     Indication: Diffuse large B-cell lymphoma
     Route: 048
     Dates: start: 20250309, end: 20250313
  8. PREDNISONE [Suspect]
     Active Substance: PREDNISONE
     Route: 048
     Dates: start: 20250401, end: 20250405
  9. DOXORUBICIN HYDROCHLORIDE, LIPOSOMAL [Suspect]
     Active Substance: DOXORUBICIN HYDROCHLORIDE
     Indication: Diffuse large B-cell lymphoma
     Route: 042
     Dates: start: 20250309, end: 20250309
  10. DOXORUBICIN HYDROCHLORIDE, LIPOSOMAL [Suspect]
     Active Substance: DOXORUBICIN HYDROCHLORIDE
     Route: 042
     Dates: start: 20250401, end: 20250401
  11. SODIUM CHLORIDE [Concomitant]
     Active Substance: SODIUM CHLORIDE
     Route: 042
     Dates: start: 20250308, end: 20250309
  12. SODIUM CHLORIDE [Concomitant]
     Active Substance: SODIUM CHLORIDE
     Route: 042
     Dates: start: 20250401, end: 20250401
  13. SODIUM CHLORIDE [Concomitant]
     Active Substance: SODIUM CHLORIDE
     Route: 042
     Dates: start: 20250428, end: 20250428
  14. BENZBROMARONE [Concomitant]
     Active Substance: BENZBROMARONE
     Indication: Blood uric acid decreased
     Route: 048
     Dates: start: 20250308, end: 20250310
  15. BENZBROMARONE [Concomitant]
     Active Substance: BENZBROMARONE
     Route: 048
     Dates: start: 20250401, end: 20250401
  16. BENZBROMARONE [Concomitant]
     Active Substance: BENZBROMARONE
     Route: 048
     Dates: start: 20250428, end: 20250428
  17. SPIRONOLACTONE [Concomitant]
     Active Substance: SPIRONOLACTONE
     Indication: Polyuria
     Route: 048
     Dates: start: 20250308, end: 20250310
  18. SPIRONOLACTONE [Concomitant]
     Active Substance: SPIRONOLACTONE
     Route: 048
     Dates: start: 20250401, end: 20250401
  19. sodium bicarbonate tablet [Concomitant]
     Route: 048
     Dates: start: 20250308, end: 20250310
  20. sodium bicarbonate tablet [Concomitant]
     Route: 048
     Dates: start: 20250401, end: 20250401
  21. sodium bicarbonate tablet [Concomitant]
     Route: 048
     Dates: start: 20250428, end: 20250429
  22. ondansetron hydrochloride tablet [Concomitant]
     Indication: Vomiting
     Route: 048
     Dates: start: 20250308, end: 20250310
  23. ondansetron hydrochloride tablet [Concomitant]
     Route: 048
     Dates: start: 20250309, end: 20250309
  24. ondansetron hydrochloride tablet [Concomitant]
     Route: 048
     Dates: start: 20250401, end: 20250401
  25. ondansetron hydrochloride tablet [Concomitant]
     Route: 048
     Dates: start: 20250428, end: 20250429
  26. FUROSEMIDE [Concomitant]
     Active Substance: FUROSEMIDE
     Route: 048
     Dates: start: 20250308, end: 20250310
  27. FUROSEMIDE [Concomitant]
     Active Substance: FUROSEMIDE
     Route: 048
     Dates: start: 20250401, end: 20250401
  28. FUROSEMIDE [Concomitant]
     Active Substance: FUROSEMIDE
     Route: 048
     Dates: start: 20250428, end: 20250429
  29. APREPITANT [Concomitant]
     Active Substance: APREPITANT
     Route: 048
     Dates: start: 20250308, end: 20250308
  30. APREPITANT [Concomitant]
     Active Substance: APREPITANT
     Route: 048
     Dates: start: 20250401, end: 20250401
  31. APREPITANT [Concomitant]
     Active Substance: APREPITANT
     Route: 048
     Dates: start: 20250428, end: 20250428
  32. PROMETHAZINE [Concomitant]
     Active Substance: PROMETHAZINE HYDROCHLORIDE
     Route: 030
     Dates: start: 20250308, end: 20250308
  33. PROMETHAZINE [Concomitant]
     Active Substance: PROMETHAZINE HYDROCHLORIDE
     Route: 030
     Dates: start: 20250401, end: 20250401
  34. PROMETHAZINE [Concomitant]
     Active Substance: PROMETHAZINE HYDROCHLORIDE
     Route: 030
     Dates: start: 20250428, end: 20250428
  35. Taken with dexamethasone sodium phosphate grou [Concomitant]
     Route: 042
     Dates: start: 20250308, end: 20250308
  36. Taken with dexamethasone sodium phosphate grou [Concomitant]
     Route: 042
     Dates: start: 20250401, end: 20250401
  37. Taken with dexamethasone sodium phosphate grou [Concomitant]
     Route: 042
     Dates: start: 20250428, end: 20250428
  38. ACETAMINOPHEN [Concomitant]
     Active Substance: ACETAMINOPHEN
     Route: 048
     Dates: start: 20250308, end: 20250308
  39. ACETAMINOPHEN [Concomitant]
     Active Substance: ACETAMINOPHEN
     Route: 048
     Dates: start: 20250401, end: 20250401
  40. ACETAMINOPHEN [Concomitant]
     Active Substance: ACETAMINOPHEN
     Route: 048
     Dates: start: 20250428, end: 20250428
  41. prednisone acetate tablet [Concomitant]
     Route: 048
     Dates: start: 20250309, end: 20250310
  42. prednisone acetate tablet [Concomitant]
     Route: 048
     Dates: start: 20250309, end: 20250310
  43. prednisone acetate tablet [Concomitant]
     Route: 048
     Dates: start: 20250401, end: 20250401
  44. syklofosfamid ampoule [Concomitant]
     Route: 042
     Dates: start: 20250309, end: 20250309
  45. syklofosfamid ampoule [Concomitant]
     Route: 042
     Dates: start: 20250401, end: 20250401
  46. DOXORUBICIN HYDROCHLORIDE [Concomitant]
     Active Substance: DOXORUBICIN HYDROCHLORIDE
     Route: 042
     Dates: start: 20250309, end: 20250309
  47. DOXORUBICIN HYDROCHLORIDE [Concomitant]
     Active Substance: DOXORUBICIN HYDROCHLORIDE
     Route: 042
     Dates: start: 20250401, end: 20250401
  48. esomeprazole magnesium enteric-coated tablet [Concomitant]
     Route: 048
     Dates: start: 20250308, end: 20250309
  49. Calcium carbonate D3 Chewable tablets [Concomitant]
     Route: 048
     Dates: start: 20250308, end: 20250309
  50. Calcium carbonate D3 Chewable tablets [Concomitant]
     Route: 048
     Dates: start: 20250401, end: 20250401
  51. GLYCERIN [Concomitant]
     Active Substance: GLYCERIN
     Indication: Constipation
     Route: 050
     Dates: start: 20250309, end: 20250309
  52. LACTULOSE [Concomitant]
     Active Substance: LACTULOSE
     Route: 048
     Dates: start: 20250428, end: 20250428
  53. OMEPRAZOLE [Concomitant]
     Active Substance: OMEPRAZOLE
     Route: 048
     Dates: start: 20250428, end: 20250429
  54. Pegylated recombinant human granulocyte stimulating factor injection [Concomitant]
     Route: 058
     Dates: start: 20250429, end: 20250429
  55. MONTMORILLONITE [Concomitant]
     Active Substance: MONTMORILLONITE
     Route: 048
     Dates: start: 20250408, end: 20250410

REACTIONS (1)
  - Hepatic function abnormal [Recovered/Resolved]

NARRATIVE: CASE EVENT DATE: 20250331
